FAERS Safety Report 9143391 (Version 1)
Quarter: 2013Q1

REPORT INFORMATION
  Report Type: Spontaneous
  Country: US (occurrence: US)
  Receive Date: 20130306
  Receipt Date: 20130306
  Transmission Date: 20140127
  Serious: No
  Sender: FDA-Public Use
  Company Number: US-ENDO PHARMACEUTICALS INC.-OPER20120179

PATIENT
  Age: 52 Year
  Sex: Male
  Weight: 86.26 kg

DRUGS (1)
  1. OPANA ER [Suspect]
     Indication: BACK PAIN
     Route: 048
     Dates: start: 2011

REACTIONS (1)
  - No adverse event [Unknown]
